FAERS Safety Report 8307633-0 (Version None)
Quarter: 2012Q2

REPORT INFORMATION
  Report Type: 
  Country: None (occurrence: None)
  Receive Date: 20120424
  Receipt Date: 20120418
  Transmission Date: 20120825
  Serious: Yes (Hospitalization)
  Sender: FDA-Public Use
  Company Number: HK-SANOFI-AVENTIS-2012SA026979

PATIENT
  Age: 60 Year
  Sex: Male

DRUGS (8)
  1. DOCETAXEL [Suspect]
     Route: 065
     Dates: start: 20120403
  2. FLUOROURACIL [Suspect]
     Route: 065
     Dates: start: 20120403, end: 20120407
  3. THYMOL [Concomitant]
     Dosage: MOUTHWASH
  4. FILGRASTIM [Concomitant]
     Dates: start: 20120410
  5. NORVASC [Concomitant]
  6. NEOMYCIN SULFATE TAB [Concomitant]
  7. NYSTATIN [Concomitant]
  8. CISPLATIN [Suspect]
     Route: 065
     Dates: start: 20120403

REACTIONS (3)
  - LEUKOPENIA [None]
  - HYPONATRAEMIA [None]
  - SEPSIS [None]
